FAERS Safety Report 10261613 (Version 2)
Quarter: 2014Q2

REPORT INFORMATION
  Report Type: Spontaneous
  Country: US (occurrence: US)
  Receive Date: 20140626
  Receipt Date: 20140626
  Transmission Date: 20141212
  Serious: No
  Sender: FDA-Public Use
  Company Number: US-MYLANLABS-2014S1007772

PATIENT
  Sex: Male
  Weight: 107.5 kg

DRUGS (1)
  1. ATORVASTATIN CALCIUM TABLETS [Suspect]
     Indication: HYPERLIPIDAEMIA
     Route: 048
     Dates: end: 201402

REACTIONS (2)
  - Drug ineffective [Recovered/Resolved]
  - Lipids increased [Recovered/Resolved]
